FAERS Safety Report 9275803 (Version 1)
Quarter: 2013Q2

REPORT INFORMATION
  Report Type: Spontaneous
  Country: US (occurrence: US)
  Receive Date: 20130507
  Receipt Date: 20130507
  Transmission Date: 20140414
  Serious: Yes (Other)
  Sender: FDA-Public Use
  Company Number: US-SANOFI-AVENTIS-2013SA045684

PATIENT
  Sex: Female

DRUGS (1)
  1. AUBAGIO [Suspect]
     Dates: end: 20130422

REACTIONS (1)
  - Wound abscess [Unknown]
